FAERS Safety Report 5776091-2 (Version None)
Quarter: 2008Q2

REPORT INFORMATION
  Report Type: 
  Country: None (occurrence: None)
  Receive Date: 20080613
  Receipt Date: 20080603
  Transmission Date: 20081010
  Serious: Yes (Hospitalization)
  Sender: FDA-Public Use
  Company Number: 2008BI012124

PATIENT
  Age: 68 Year
  Sex: Female

DRUGS (1)
  1. AVONEX [Suspect]
     Indication: MULTIPLE SCLEROSIS
     Dosage: 30 UG;QW; IM
     Route: 030
     Dates: start: 19960101, end: 20080401

REACTIONS (8)
  - ABDOMINAL PAIN UPPER [None]
  - BLOOD POTASSIUM DECREASED [None]
  - CHOLECYSTECTOMY [None]
  - CHOLELITHIASIS [None]
  - CHROMATURIA [None]
  - HEART RATE INCREASED [None]
  - LIVER DISORDER [None]
  - STENT PLACEMENT [None]
